FAERS Safety Report 19650852 (Version 1)
Quarter: 2021Q3

REPORT INFORMATION
  Report Type: Spontaneous
  Country: US (occurrence: US)
  Receive Date: 20210802
  Receipt Date: 20210802
  Transmission Date: 20211014
  Serious: No
  Sender: FDA-Public Use
  Company Number: None

PATIENT
  Age: 82 Year
  Sex: Male
  Weight: 73 kg

DRUGS (2)
  1. CARBIDOPA/LEVODOPA (CARBIDOPA 25MG/LEVODOPA 100MG TAB) [Suspect]
     Active Substance: CARBIDOPA\LEVODOPA
     Indication: PARKINSON^S DISEASE
     Route: 048
     Dates: start: 20190214, end: 20201208
  2. CARBIDOPA/LEVODOPA (CARBIDOPA 50MG/LEVODOPA 200MG TAB) [Suspect]
     Active Substance: CARBIDOPA\LEVODOPA
     Indication: PARKINSON^S DISEASE
     Dosage: ?          OTHER DOSE:50/200 MG;?
     Route: 048
     Dates: start: 20201208, end: 20201211

REACTIONS (17)
  - Agitation [None]
  - Insomnia [None]
  - Dizziness [None]
  - Hallucination, visual [None]
  - Cognitive disorder [None]
  - Depression [None]
  - Dementia [None]
  - Treatment noncompliance [None]
  - Sedation [None]
  - Paranoia [None]
  - Delusion [None]
  - Confusional state [None]
  - Parkinson^s disease [None]
  - Personality change [None]
  - Psychotic disorder [None]
  - Mood swings [None]
  - Homicidal ideation [None]

NARRATIVE: CASE EVENT DATE: 20201211
